FAERS Safety Report 4653941-4 (Version None)
Quarter: 2005Q2

REPORT INFORMATION
  Report Type: 
  Country: None (occurrence: None)
  Receive Date: 20050504
  Receipt Date: 20050425
  Transmission Date: 20051028
  Serious: Yes (Hospitalization)
  Sender: FDA-Public Use
  Company Number: 2005-127791-NL

PATIENT
  Age: 46 Year
  Sex: Male

DRUGS (6)
  1. MIRTAZAPINE [Suspect]
     Dosage: MG
     Route: 048
     Dates: start: 20050315, end: 20050327
  2. ZOPICLONE [Concomitant]
  3. TEMAZEPAM [Concomitant]
  4. PROCYCLIDINE HYDROCHLORIDE 2MG TAB [Concomitant]
  5. HALOPERIDOL [Concomitant]
  6. LORAZEPAM [Concomitant]

REACTIONS (1)
  - STEVENS-JOHNSON SYNDROME [None]
